FAERS Safety Report 23083181 (Version 1)
Quarter: 2023Q4

REPORT INFORMATION
  Report Type: Spontaneous
  Country: US (occurrence: None)
  Receive Date: 20231017
  Receipt Date: 20231017
  Transmission Date: 20240110
  Serious: Yes (Hospitalization)
  Sender: FDA-Public Use
  Company Number: None

PATIENT
  Age: 80 Year
  Sex: Male
  Weight: 89.8 kg

DRUGS (2)
  1. LENVATINIB [Suspect]
     Active Substance: LENVATINIB
     Dosage: FREQUENCY : DAILY;?
     Route: 048
     Dates: start: 20221024, end: 20221108
  2. EVEROLIMUS [Suspect]
     Active Substance: EVEROLIMUS
     Dosage: FREQUENCY : DAILY;?
     Route: 048
     Dates: start: 20221024, end: 20221108

REACTIONS (5)
  - Weight decreased [None]
  - Diarrhoea [None]
  - Blood urea increased [None]
  - Blood creatinine increased [None]
  - Asthenia [None]

NARRATIVE: CASE EVENT DATE: 20221031
